FAERS Safety Report 5534375-7 (Version None)
Quarter: 2007Q4

REPORT INFORMATION
  Report Type: 
  Country: None (occurrence: None)
  Receive Date: 20071130
  Receipt Date: 20071121
  Transmission Date: 20080405
  Serious: Yes (Hospitalization)
  Sender: FDA-Public Use
  Company Number: 2007-03908

PATIENT
  Age: 50 Year
  Sex: Male
  Weight: 77 kg

DRUGS (1)
  1. VELCADE [Suspect]
     Indication: MULTIPLE MYELOMA
     Dosage: 1.30 MG/M2, INTRAVENOUS
     Route: 042
     Dates: start: 20071002, end: 20071116

REACTIONS (24)
  - ABDOMINAL PAIN [None]
  - ANOREXIA [None]
  - CHEST DISCOMFORT [None]
  - CHEST PAIN [None]
  - CHILLS [None]
  - CONSTIPATION [None]
  - COUGH [None]
  - DIARRHOEA [None]
  - DYSPHAGIA [None]
  - DYSPNOEA EXERTIONAL [None]
  - DYSURIA [None]
  - EPISTAXIS [None]
  - HAEMATEMESIS [None]
  - HAEMATOCHEZIA [None]
  - HAEMOPTYSIS [None]
  - MELAENA [None]
  - NAUSEA [None]
  - NIGHT SWEATS [None]
  - OLIGURIA [None]
  - ORTHOPNOEA [None]
  - PANCYTOPENIA [None]
  - PRODUCTIVE COUGH [None]
  - PYREXIA [None]
  - WEIGHT DECREASED [None]
